FAERS Safety Report 9528347 (Version 1)
Quarter: 2013Q3

REPORT INFORMATION
  Report Type: Spontaneous
  Country: GB (occurrence: None)
  Receive Date: 20130913
  Receipt Date: 20130913
  Transmission Date: 20140515
  Serious: Yes (Hospitalization, Other)
  Sender: FDA-Public Use
  Company Number: AUR-APL-2013-07541

PATIENT
  Age: 87 Year
  Sex: Female

DRUGS (11)
  1. AMOXICILLIN (AMOXICILLIN) [Suspect]
     Indication: URINARY TRACT INFECTION
     Dosage: 750 MG (250 MG, 3 IN 1 D), ORAL
     Route: 048
     Dates: start: 20121120, end: 20121201
  2. BETAHISTINE (BETAHISTINE) [Concomitant]
  3. CO-CODAMOL (PANADEINE CO) [Concomitant]
  4. DIAZEPAM (DIAZEPAM) [Concomitant]
  5. FELODIPINE (FELODIPINE) [Concomitant]
  6. IBUPROFEN (IBUPROFEN) [Concomitant]
  7. MEBEVERINE (MEBEVERINE) [Concomitant]
  8. OLANZAPINE (OLANZAPINE) [Concomitant]
  9. PROPRANOLOL (PROPRANOLOL) [Concomitant]
  10. RANITIDINE (RANITIDINE) [Concomitant]
  11. TEMAZEPAM (TEMAZEPAM) [Concomitant]

REACTIONS (3)
  - Treatment failure [None]
  - Hypophagia [None]
  - Confusional state [None]
